FAERS Safety Report 6190791-4 (Version None)
Quarter: 2009Q2

REPORT INFORMATION
  Report Type: 
  Country: None (occurrence: None)
  Receive Date: 20090513
  Receipt Date: 20090513
  Transmission Date: 20091009
  Serious: Yes (Life-Threatening)
  Sender: FDA-Public Use
  Company Number: None

PATIENT
  Age: 37 Year
  Sex: Female
  Weight: 64.4108 kg

DRUGS (2)
  1. KENALOG [Suspect]
     Indication: ALLERGY TO PLANTS
     Dates: start: 20090409, end: 20090512
  2. ADVAIR HFA [Concomitant]

REACTIONS (7)
  - ADVERSE DRUG REACTION [None]
  - BLOOD PRESSURE INCREASED [None]
  - ELECTROCARDIOGRAM T WAVE INVERSION [None]
  - HAEMORRHAGE [None]
  - HEADACHE [None]
  - RESPIRATORY DISORDER [None]
  - THROMBOSIS [None]
